FAERS Safety Report 23610873 (Version 4)
Quarter: 2024Q2

REPORT INFORMATION
  Report Type: Spontaneous
  Country: PK (occurrence: PK)
  Receive Date: 20240308
  Receipt Date: 20240617
  Transmission Date: 20240716
  Serious: Yes (Other)
  Sender: FDA-Public Use
  Company Number: PK-PFIZER INC-PV202300178325

PATIENT
  Age: 39 Year
  Sex: Female

DRUGS (2)
  1. IXIFI [Suspect]
     Active Substance: INFLIXIMAB-QBTX
     Indication: Ankylosing spondylitis
     Dosage: 325 MG AFTER EVERY 2 MONTHS
     Route: 042
  2. IXIFI [Suspect]
     Active Substance: INFLIXIMAB-QBTX
     Dosage: 365 MG AFTER EVERY 2 MONTHS
     Route: 042
     Dates: start: 202310

REACTIONS (3)
  - Condition aggravated [Unknown]
  - Back pain [Unknown]
  - Off label use [Unknown]
